FAERS Safety Report 13930835 (Version 2)
Quarter: 2017Q4

REPORT INFORMATION
  Report Type: Spontaneous
  Country: US (occurrence: US)
  Receive Date: 20170901
  Receipt Date: 20171016
  Transmission Date: 20180320
  Serious: Yes (Death, Other)
  Sender: FDA-Public Use
  Company Number: US-DSJP-DSU-2017-133359

PATIENT

DRUGS (1)
  1. BENICAR [Suspect]
     Active Substance: OLMESARTAN MEDOXOMIL
     Indication: HYPERTENSION
     Dosage: 1 TAB, QD
     Route: 065
     Dates: start: 2007, end: 201612

REACTIONS (3)
  - Renal failure [Unknown]
  - Cardiac arrest [Fatal]
  - Malabsorption [Unknown]

NARRATIVE: CASE EVENT DATE: 20161216
